FAERS Safety Report 6083639-X (Version None)
Quarter: 2009Q1

REPORT INFORMATION
  Report Type: 
  Country: None (occurrence: None)
  Receive Date: 20090219
  Receipt Date: 20050213
  Transmission Date: 20090719
  Serious: Yes (Hospitalization, Disabling)
  Sender: FDA-Public Use
  Company Number: PHEH1995US03455

PATIENT
  Age: 28 Year
  Sex: Female

DRUGS (2)
  1. PARLODEL [Suspect]
     Dosage: UNSPECIFIED
     Route: 048
     Dates: start: 19841215
  2. IRON (IRON) [Concomitant]

REACTIONS (11)
  - APHASIA [None]
  - CEREBRAL HAEMORRHAGE [None]
  - CHEST PAIN [None]
  - FALL [None]
  - HEADACHE [None]
  - HEMIANOPIA [None]
  - HEMIPLEGIA [None]
  - LYMPHADENOPATHY [None]
  - MITRAL VALVE STENOSIS [None]
  - NAUSEA [None]
  - SINUS BRADYCARDIA [None]
